FAERS Safety Report 14585127 (Version 1)
Quarter: 2018Q1

REPORT INFORMATION
  Report Type: Spontaneous
  Country: FR (occurrence: FR)
  Receive Date: 20180301
  Receipt Date: 20180301
  Transmission Date: 20180509
  Serious: Yes (Other)
  Sender: FDA-Public Use
  Company Number: FR-CIPLA LTD.-2018FR07137

PATIENT

DRUGS (5)
  1. BUCCOLAM [Concomitant]
     Active Substance: MIDAZOLAM HYDROCHLORIDE
     Indication: PRODUCT USED FOR UNKNOWN INDICATION
     Dosage: UNK
     Route: 048
  2. TRILEPTAL [Concomitant]
     Active Substance: OXCARBAZEPINE
     Indication: PRODUCT USED FOR UNKNOWN INDICATION
     Dosage: 6 ML X 2/J
     Route: 048
  3. KEPPRA [Concomitant]
     Active Substance: LEVETIRACETAM
     Indication: PRODUCT USED FOR UNKNOWN INDICATION
     Dosage: 6 ML/J, QD
     Route: 048
  4. CARBOPLATIN. [Suspect]
     Active Substance: CARBOPLATIN
     Indication: GANGLIOGLIOMA
     Dosage: CYCLICAL
     Route: 041
     Dates: start: 20171122, end: 20171122
  5. VINBLASTINE [Concomitant]
     Active Substance: VINBLASTINE
     Indication: GANGLIOGLIOMA
     Dosage: CYCLICAL, UNK
     Route: 041
     Dates: start: 20171122, end: 20171122

REACTIONS (4)
  - Erythema [Recovered/Resolved]
  - Lip swelling [Recovered/Resolved]
  - Abdominal pain [Recovered/Resolved]
  - Oropharyngeal pain [Recovered/Resolved]

NARRATIVE: CASE EVENT DATE: 20171122
